FAERS Safety Report 19279115 (Version 4)
Quarter: 2022Q1

REPORT INFORMATION
  Report Type: Report from Study
  Country: US (occurrence: None)
  Receive Date: 20210520
  Receipt Date: 20220222
  Transmission Date: 20220423
  Serious: Yes (Life-Threatening, Hospitalization)
  Sender: FDA-Public Use
  Company Number: US-ROCHE-2831735

PATIENT
  Age: 51 Year
  Sex: Female
  Weight: 92.1 kg

DRUGS (3)
  1. VENETOCLAX [Suspect]
     Active Substance: VENETOCLAX
     Indication: Chronic lymphocytic leukaemia
     Dosage: ON DAYS 1-7, CYCLE 3, THEN DOSE ESCALATION?LAST ADMINISTERED: 30/MAR/2021
     Route: 048
     Dates: start: 20200903
  2. OBINUTUZUMAB [Suspect]
     Active Substance: OBINUTUZUMAB
     Indication: Chronic lymphocytic leukaemia
     Dosage: ON DAY 1, CYCLE 1 THEN DOSE ESCALATION?LAST ADMINISTERED: 21/JAN/2021
     Route: 042
     Dates: start: 20200903
  3. IBRUTINIB [Suspect]
     Active Substance: IBRUTINIB
     Indication: Chronic lymphocytic leukaemia
     Dosage: ON DAYS 1-28, CYCLES 1-19?LAST ADMINISTERED: 30/MAR/2021
     Route: 048
     Dates: start: 20200903

REACTIONS (2)
  - COVID-19 [Recovered/Resolved]
  - COVID-19 [Not Recovered/Not Resolved]

NARRATIVE: CASE EVENT DATE: 20210405
